FAERS Safety Report 8658020 (Version 2)
Quarter: 2012Q4

REPORT INFORMATION
  Report Type: 
  Country: US (occurrence: US)
  Receive Date: 20120710
  Receipt Date: 20120905
  Transmission Date: 20130627
  Serious: Yes (Hospitalization)
  Sender: FDA-Public Use
  Company Number: US-BAYER-2012-067926

PATIENT
  Age: 25 Year
  Sex: Female
  Weight: 47.62 kg

DRUGS (21)
  1. YASMIN [Suspect]
     Indication: CONTRACEPTION
     Dosage: UNK
     Dates: start: 2004, end: 2009
  2. YASMIN [Suspect]
     Indication: OVARIAN CYST
  3. OCELLA [Suspect]
     Indication: CONTRACEPTION
     Dosage: UNK
     Dates: start: 2009, end: 2011
  4. OCELLA [Suspect]
     Indication: OVARIAN CYST
  5. YAZ [Suspect]
     Indication: CONTRACEPTION
     Dosage: UNK
     Dates: start: 2006
  6. YAZ [Suspect]
     Indication: OVARIAN CYST
  7. ANBESOL [BENZOCAINE] [Concomitant]
     Dosage: UNK
  8. KLONOPIN [Concomitant]
     Dosage: UNK
  9. BENTYL [Concomitant]
     Dosage: UNK
  10. COLACE [Concomitant]
     Dosage: UNK
  11. PERCOCET [Concomitant]
     Dosage: UNK
  12. MIRALAX [Concomitant]
     Dosage: UNK
  13. ATARAX [Concomitant]
     Dosage: UNK
  14. ZOFRAN [Concomitant]
     Dosage: UNK
  15. TRAZODONE [Concomitant]
     Indication: INSOMNIA
     Dosage: UNK
     Dates: start: 20110120, end: 20110210
  16. AMITRIPTYLINE [Concomitant]
     Indication: INSOMNIA
     Dosage: UNK
     Dates: start: 20110120, end: 20110210
  17. CLONAZEPAM [Concomitant]
     Indication: INSOMNIA
     Dosage: UNK
     Dates: start: 20110120, end: 20110210
  18. PRILOSEC [Concomitant]
     Indication: ABDOMINAL PAIN UPPER
     Dosage: UNK
     Dates: start: 20110120, end: 20110210
  19. PROPRANOLOL [Concomitant]
     Indication: ANXIETY DISORDER
     Dosage: UNK
     Dates: start: 20110120, end: 20110210
  20. HYPMAX - SL [Concomitant]
     Indication: ABDOMINAL PAIN
     Dosage: UNK
     Dates: start: 20110120, end: 20110210
  21. CYCLOBENZAPRINE [Concomitant]
     Indication: BACK PAIN
     Dosage: UNK
     Dates: start: 1995

REACTIONS (7)
  - Mesenteric vein thrombosis [None]
  - Gallbladder disorder [None]
  - Injury [None]
  - Abdominal pain [None]
  - Nausea [None]
  - Presyncope [None]
  - Gait disturbance [None]
